FAERS Safety Report 18385692 (Version 1)
Quarter: 2020Q4

REPORT INFORMATION
  Report Type: Report from Study
  Country: AU (occurrence: AU)
  Receive Date: 20201015
  Receipt Date: 20201015
  Transmission Date: 20210114
  Serious: Yes (Life-Threatening, Hospitalization, Other)
  Sender: FDA-Public Use
  Company Number: AU-SA-2018SA086677

PATIENT

DRUGS (24)
  1. POMALIDOMIDE [Suspect]
     Active Substance: POMALIDOMIDE
     Indication: PLASMA CELL MYELOMA
     Dosage: 1 MG,QD
     Route: 048
     Dates: start: 20180214
  2. LYRICA [Concomitant]
     Active Substance: PREGABALIN
     Indication: PROPHYLAXIS
     Dosage: UNK UNK,UNK
     Route: 048
     Dates: start: 2013
  3. DITHIAZIDE [Concomitant]
     Active Substance: HYDROCHLOROTHIAZIDE
     Indication: PROPHYLAXIS
     Dosage: UNK UNK,UNK
     Route: 048
     Dates: start: 2015
  4. SODIUM CLODRONATE [Concomitant]
     Active Substance: CLODRONIC ACID
     Indication: PROPHYLAXIS
     Dosage: UNK UNK,UNK
     Route: 048
     Dates: start: 2015
  5. MORPHINE [Concomitant]
     Active Substance: MORPHINE
     Dosage: UNK UNK,UNK
     Route: 042
     Dates: start: 20180318, end: 20180319
  6. ISATUXIMAB [Suspect]
     Active Substance: ISATUXIMAB
     Dosage: 10 MG/KG,QW
     Route: 042
     Dates: start: 20171220, end: 20171220
  7. DEXAMETHASONE. [Suspect]
     Active Substance: DEXAMETHASONE
     Indication: PLASMA CELL MYELOMA
     Dosage: 20 MG,QW
     Route: 048
     Dates: start: 20180314, end: 20180314
  8. PARACETAMOL [Concomitant]
     Active Substance: ACETAMINOPHEN
     Indication: PROPHYLAXIS
     Dosage: 1000 MG,1X
     Route: 048
     Dates: start: 20180314, end: 20180314
  9. D-MANNOSE [Concomitant]
     Indication: PROPHYLAXIS
     Dosage: UNK UNK,UNK
     Route: 048
     Dates: start: 201707
  10. PROTAMINE [Concomitant]
     Active Substance: PROTAMINE
     Dosage: UNK UNK,UNK
     Route: 042
     Dates: start: 20180318, end: 20180318
  11. TAZOCIN [Concomitant]
     Active Substance: PIPERACILLIN SODIUM\TAZOBACTAM SODIUM
     Dosage: UNK UNK,UNK
     Route: 042
     Dates: start: 20180311, end: 20180318
  12. POMALIDOMIDE [Suspect]
     Active Substance: POMALIDOMIDE
     Dosage: 4 MG,QD
     Route: 048
     Dates: start: 20171220, end: 20180107
  13. DEXAMETHASONE. [Suspect]
     Active Substance: DEXAMETHASONE
     Dosage: 20 MG,QW
     Route: 048
     Dates: start: 20171220, end: 20171220
  14. BACTRIM [Concomitant]
     Active Substance: SULFAMETHOXAZOLE\TRIMETHOPRIM
     Indication: PROPHYLAXIS
     Dosage: UNK UNK,UNK
     Route: 048
     Dates: start: 2013
  15. HYDROCORTISONE. [Concomitant]
     Active Substance: HYDROCORTISONE
     Dosage: UNK UNK,UNK
     Route: 042
     Dates: start: 20180318, end: 20180318
  16. ASPIRIN [ACETYLSALICYLIC ACID] [Concomitant]
     Active Substance: ASPIRIN
     Indication: PROPHYLAXIS
     Dosage: UNK UNK,UNK
     Route: 048
     Dates: start: 2013
  17. PROMETHAZINE [Concomitant]
     Active Substance: PROMETHAZINE HYDROCHLORIDE
     Indication: PROPHYLAXIS
     Dosage: 12.5 MG,1X
     Route: 042
     Dates: start: 20180314, end: 20180314
  18. VALACICLOVIR [Concomitant]
     Active Substance: VALACYCLOVIR HYDROCHLORIDE
     Indication: PROPHYLAXIS
     Dosage: UNK UNK,UNK
     Route: 048
     Dates: start: 2015
  19. ESOMEPRAZOLE. [Concomitant]
     Active Substance: ESOMEPRAZOLE MAGNESIUM
     Indication: PROPHYLAXIS
     Dosage: UNK UNK,UNK
     Route: 048
     Dates: start: 2015
  20. RANITIDINE. [Concomitant]
     Active Substance: RANITIDINE
     Indication: PROPHYLAXIS
     Dosage: 50 MG,1X
     Route: 042
     Dates: start: 20180314, end: 20180314
  21. TRANEXAMIC ACID. [Concomitant]
     Active Substance: TRANEXAMIC ACID
     Dosage: UNK UNK,UNK
     Route: 042
     Dates: start: 20180318, end: 20180318
  22. ISATUXIMAB [Suspect]
     Active Substance: ISATUXIMAB
     Indication: PLASMA CELL MYELOMA
     Dosage: 10 MG/KG, QOW
     Route: 042
     Dates: start: 20180314, end: 20180314
  23. PHYTOMENADIONE [Concomitant]
     Active Substance: PHYTONADIONE
     Dosage: UNK UNK,UNK
     Route: 042
     Dates: start: 20180318, end: 20180318
  24. AZITHROMYCIN ANHYDROUS. [Concomitant]
     Active Substance: AZITHROMYCIN ANHYDROUS
     Dosage: UNK UNK,UNK
     Route: 042
     Dates: start: 20180311, end: 20180316

REACTIONS (3)
  - Pulmonary embolism [Recovered/Resolved]
  - Pleural effusion [Recovered/Resolved]
  - Haemothorax [Recovered/Resolved]

NARRATIVE: CASE EVENT DATE: 20180319
